FAERS Safety Report 15838373 (Version 1)
Quarter: 2018Q4

REPORT INFORMATION
  Report Type: Spontaneous
  Country: US (occurrence: US)
  Receive Date: 20181221
  Receipt Date: 20181221
  Transmission Date: 20190205
  Serious: Yes (Hospitalization)
  Sender: FDA-Public Use
  Company Number: None

PATIENT
  Age: 20 Month
  Sex: Male
  Weight: 9.94 kg

DRUGS (4)
  1. DACTINOMYCIN [Suspect]
     Active Substance: DACTINOMYCIN
     Dosage: ?          OTHER DOSE:.4 MG;?
     Dates: end: 20181030
  2. CAMPTOSAR [Suspect]
     Active Substance: IRINOTECAN HYDROCHLORIDE
     Dates: end: 20181012
  3. CYCLOPHOSHAMIDE (26271) [Suspect]
     Active Substance: CYCLOPHOSPHAMIDE
     Dates: end: 20181030
  4. VINCRISTINE SULFATE. [Suspect]
     Active Substance: VINCRISTINE SULFATE
     Dosage: ?          OTHER DOSE:1.95 MG;?
     Dates: end: 20181113

REACTIONS (1)
  - Neutrophil count decreased [None]

NARRATIVE: CASE EVENT DATE: 20181116
